FAERS Safety Report 6656534-2 (Version None)
Quarter: 2010Q1

REPORT INFORMATION
  Report Type: 
  Country: None (occurrence: None)
  Receive Date: 20100329
  Receipt Date: 20100319
  Transmission Date: 20100710
  Serious: Yes (Life-Threatening, Hospitalization)
  Sender: FDA-Public Use
  Company Number: FR-WYE-G05791610

PATIENT
  Sex: Male

DRUGS (4)
  1. EFFEXOR [Suspect]
     Route: 048
     Dates: end: 20091104
  2. EQUANIL [Concomitant]
     Dosage: 1200 MG TOTAL DAILY
     Route: 048
  3. NOCTRAN 10 [Concomitant]
     Dosage: 20 MG TOTAL DAILY
     Route: 048
  4. ESPERAL [Suspect]
     Route: 048
     Dates: end: 20091104

REACTIONS (9)
  - BILIARY FIBROSIS [None]
  - CIRCULATORY COLLAPSE [None]
  - GENERAL PHYSICAL HEALTH DETERIORATION [None]
  - HEPATIC CIRRHOSIS [None]
  - HEPATITIS FULMINANT [None]
  - HILAR LYMPHADENOPATHY [None]
  - PYREXIA [None]
  - UPPER GASTROINTESTINAL HAEMORRHAGE [None]
  - VENOOCCLUSIVE LIVER DISEASE [None]
